FAERS Safety Report 19517419 (Version 1)
Quarter: 2021Q3

REPORT INFORMATION
  Report Type: Report from Study
  Country: BR (occurrence: BR)
  Receive Date: 20210712
  Receipt Date: 20210712
  Transmission Date: 20211014
  Serious: Yes (Life-Threatening, Other)
  Sender: FDA-Public Use
  Company Number: BR-BRISTOL-MYERS SQUIBB COMPANY-BMS-2021-066904

PATIENT
  Age: 58 Year
  Sex: Female

DRUGS (2)
  1. CARDIPRIL [CAPTOPRIL] [Concomitant]
     Indication: BLOOD PRESSURE MEASUREMENT
     Dosage: UNK
     Route: 065
  2. ABATACEPT [Suspect]
     Active Substance: ABATACEPT
     Indication: RHEUMATOID ARTHRITIS
     Dosage: 250 MILLIGRAM (2 BOXES) ONCE A MONTH
     Route: 042

REACTIONS (7)
  - Gait disturbance [Recovered/Resolved]
  - Erythema [Not Recovered/Not Resolved]
  - Hernia [Unknown]
  - Hand deformity [Unknown]
  - Pain [Not Recovered/Not Resolved]
  - Arthralgia [Not Recovered/Not Resolved]
  - Sleep disorder [Unknown]
